FAERS Safety Report 7409491-5 (Version None)
Quarter: 2011Q1

REPORT INFORMATION
  Report Type: 
  Country: None (occurrence: None)
  Receive Date: 20110301
  Receipt Date: 20100713
  Transmission Date: 20110831
  Serious: Yes (Other)
  Sender: FDA-Public Use
  Company Number: RB-12937-2010

PATIENT
  Age: 11 Year
  Sex: Female

DRUGS (1)
  1. SUBOXONE [Suspect]
     Indication: PRODUCT USED FOR UNKNOWN INDICATION
     Dosage: (TOOK 8MG PARTIAL TABLET X1 BUCCAL)
     Route: 002
     Dates: start: 20100713, end: 20100713

REACTIONS (3)
  - FATIGUE [None]
  - THERAPY NAIVE [None]
  - NAUSEA [None]
